FAERS Safety Report 21746246 (Version 1)
Quarter: 2022Q4

REPORT INFORMATION
  Report Type: Report from Study
  Country: US (occurrence: US)
  Receive Date: 20221219
  Receipt Date: 20221219
  Transmission Date: 20230113
  Serious: No
  Sender: FDA-Public Use
  Company Number: US-ABBVIE-4196885

PATIENT
  Age: 74 Year
  Sex: Female

DRUGS (11)
  1. SKYRIZI [Suspect]
     Active Substance: RISANKIZUMAB-RZAA
     Indication: Psoriasis
     Dosage: FORM STRENGTH: 150 MILLIGRAM?WEEK FOUR
     Route: 058
  2. SKYRIZI [Suspect]
     Active Substance: RISANKIZUMAB-RZAA
     Indication: Psoriasis
     Dosage: FORM STRENGTH: 150 MILLIGRAM
     Route: 058
  3. SKYRIZI [Suspect]
     Active Substance: RISANKIZUMAB-RZAA
     Dosage: FORM STRENGTH: 150 MILLIGRAM?WEEK ZERO
     Route: 058
     Dates: start: 20221014
  4. OMEPRAZOLE\SODIUM BICARBONATE [Concomitant]
     Active Substance: OMEPRAZOLE\SODIUM BICARBONATE
     Indication: Product used for unknown indication
     Dosage: OMEPRAZOLE 20 MG CAPSULE DR
     Route: 048
  5. OTEZLA [Concomitant]
     Active Substance: APREMILAST
     Indication: Product used for unknown indication
     Dosage: OTEZLA 30 MG TABLET
     Route: 048
  6. MODERNA COVID-19 VACCINE [Concomitant]
     Active Substance: ELASOMERAN
     Indication: COVID-19 immunisation
     Dosage: ONE IN ONCE
     Route: 030
  7. LOSARTAN POTASSIUM [Concomitant]
     Active Substance: LOSARTAN POTASSIUM
     Indication: Product used for unknown indication
     Dosage: LOSARTAN POTASSIUM 25 MG TABLET
     Route: 048
  8. CYCLOBENZAPRINE HYDROCHLORIDE [Concomitant]
     Active Substance: CYCLOBENZAPRINE HYDROCHLORIDE
     Indication: Product used for unknown indication
     Dosage: CYCLOBENZAPRINE HCL 10 MG TABLET
     Route: 048
  9. AMITRIPTYLINE HYDROCHLORIDE [Concomitant]
     Active Substance: AMITRIPTYLINE HYDROCHLORIDE
     Indication: Product used for unknown indication
     Dosage: AMITRIPTYLINE HCL 25 MG TABLET
     Route: 048
  10. Chlordiazepoxide hcl/clidinium [Concomitant]
     Indication: Product used for unknown indication
     Dosage: CHLORDIAZEPOXIDE HCL 10 MG CAPSULE
     Route: 048
  11. PNEUMOVAX 23 [Concomitant]
     Active Substance: PNEUMOCOCCAL VACCINE, POLYVALENT 23
     Indication: Product used for unknown indication
     Dosage: PNEUMOVAX 23 25MCG/0.5 SYRINGE?ONE IN ONCE
     Route: 065

REACTIONS (2)
  - Fatigue [Unknown]
  - Hypersomnia [Unknown]

NARRATIVE: CASE EVENT DATE: 20221101
